FAERS Safety Report 15056674 (Version 3)
Quarter: 2018Q4

REPORT INFORMATION
  Report Type: Spontaneous
  Country: US (occurrence: US)
  Receive Date: 20180623
  Receipt Date: 20181227
  Transmission Date: 20190204
  Serious: Yes (Disabling)
  Sender: FDA-Public Use
  Company Number: US-OTSUKA-2018_015774

PATIENT
  Sex: Female

DRUGS (3)
  1. ABILIFY [Suspect]
     Active Substance: ARIPIPRAZOLE
     Indication: MAJOR DEPRESSION
     Dosage: 5 MG, QD
     Route: 065
     Dates: start: 20141102, end: 201610
  2. ABILIFY [Suspect]
     Active Substance: ARIPIPRAZOLE
     Indication: IRRITABILITY
  3. ABILIFY [Suspect]
     Active Substance: ARIPIPRAZOLE
     Indication: AGITATION

REACTIONS (14)
  - Product use in unapproved indication [Unknown]
  - Mental impairment [Unknown]
  - Emotional distress [Unknown]
  - Pain [Unknown]
  - Gambling disorder [Recovered/Resolved]
  - Fear [Unknown]
  - Legal problem [Unknown]
  - Disability [Unknown]
  - Anhedonia [Unknown]
  - Social problem [Unknown]
  - Economic problem [Unknown]
  - Physical disability [Unknown]
  - Injury [Unknown]
  - Anxiety [Unknown]
